FAERS Safety Report 6773385-9 (Version None)
Quarter: 2010Q2

REPORT INFORMATION
  Report Type: 
  Country: None (occurrence: None)
  Receive Date: 20100611
  Receipt Date: 20100602
  Transmission Date: 20101027
  Serious: Yes (Hospitalization)
  Sender: FDA-Public Use
  Company Number: 2010US001864

PATIENT
  Age: 55 Year
  Sex: Male

DRUGS (13)
  1. PROGRAF [Suspect]
     Indication: LIVER TRANSPLANT
     Dosage: ORAL
     Route: 048
     Dates: start: 20100201
  2. LEXAPRO [Suspect]
     Indication: DEPRESSION
     Dosage: 10 MG, UID/QD, ORAL; 5 MG, UID/QD, ORAL; 20 MG, UID/QD, ORAL
     Route: 048
     Dates: end: 20100409
  3. LEXAPRO [Suspect]
     Indication: DEPRESSION
     Dosage: 10 MG, UID/QD, ORAL; 5 MG, UID/QD, ORAL; 20 MG, UID/QD, ORAL
     Route: 048
     Dates: start: 20100410, end: 20100501
  4. LEXAPRO [Suspect]
     Indication: DEPRESSION
     Dosage: 10 MG, UID/QD, ORAL; 5 MG, UID/QD, ORAL; 20 MG, UID/QD, ORAL
     Route: 048
     Dates: start: 20051001
  5. LEXAPRO [Suspect]
     Indication: DEPRESSION
     Dosage: 10 MG, UID/QD, ORAL; 5 MG, UID/QD, ORAL; 20 MG, UID/QD, ORAL
     Route: 048
     Dates: start: 20100501
  6. ACYCLOVIR [Concomitant]
  7. FLUDROCORTISONE ACETATE [Concomitant]
  8. OMEPRAZOLE [Concomitant]
  9. NYSTATIN [Concomitant]
  10. MULTIVITAMIN [Concomitant]
  11. ASPIRIN [Concomitant]
  12. OXYCODONE HCL [Concomitant]
  13. CYCLOBENZAPRINE [Concomitant]

REACTIONS (2)
  - DRUG INTERACTION [None]
  - MENTAL STATUS CHANGES [None]
